FAERS Safety Report 23139583 (Version 1)
Quarter: 2023Q4

REPORT INFORMATION
  Report Type: Spontaneous
  Country: HU (occurrence: HU)
  Receive Date: 20231102
  Receipt Date: 20231102
  Transmission Date: 20240110
  Serious: Yes (Hospitalization, Other)
  Sender: FDA-Public Use
  Company Number: HU-009507513-2310HUN012645

PATIENT
  Age: 34 Year
  Sex: Female

DRUGS (2)
  1. IMIPENEM AND CILASTATIN [Suspect]
     Active Substance: CILASTATIN SODIUM\IMIPENEM
     Indication: Pyrexia
     Dosage: UNK
     Route: 042
  2. IMIPENEM AND CILASTATIN [Suspect]
     Active Substance: CILASTATIN SODIUM\IMIPENEM
     Indication: Procalcitonin increased

REACTIONS (8)
  - Acute respiratory distress syndrome [Recovered/Resolved with Sequelae]
  - Renal impairment [Recovered/Resolved with Sequelae]
  - Respiratory failure [Recovered/Resolved with Sequelae]
  - Thrombosis in device [Unknown]
  - Cardiomyopathy [Unknown]
  - Klebsiella test positive [Unknown]
  - Acinetobacter test positive [Unknown]
  - General physical health deterioration [Unknown]
